FAERS Safety Report 4949414-1 (Version None)
Quarter: 2006Q1

REPORT INFORMATION
  Report Type: 
  Country: None (occurrence: None)
  Receive Date: 20060321
  Receipt Date: 20060209
  Transmission Date: 20060701
  Serious: Yes (Life-Threatening, Hospitalization)
  Sender: FDA-Public Use
  Company Number: JP-AVENTIS-200610462JP

PATIENT
  Age: 80 Year
  Sex: Female
  Weight: 51.6 kg

DRUGS (9)
  1. AMARYL [Suspect]
     Indication: DIABETES MELLITUS
     Route: 048
     Dates: start: 20000911, end: 20060102
  2. LASIX [Concomitant]
     Indication: OEDEMA
     Route: 048
     Dates: start: 19990420, end: 20060102
  3. LASIX [Concomitant]
     Route: 048
     Dates: start: 19990420
  4. RENIVACE [Concomitant]
     Indication: HYPERTENSION
     Route: 048
     Dates: start: 20030830, end: 20060102
  5. ALDACTONE [Concomitant]
     Indication: OEDEMA
     Route: 048
     Dates: start: 19990420, end: 20060102
  6. WARFARIN [Concomitant]
     Route: 048
     Dates: start: 19990420, end: 20060120
  7. PARAMIDIN [Concomitant]
     Route: 048
     Dates: start: 19990420, end: 20060120
  8. RHYTHMY [Concomitant]
     Indication: INSOMNIA
     Route: 048
     Dates: start: 20051212, end: 20060102
  9. TETRAMIDE [Concomitant]
     Indication: RESTLESSNESS
     Route: 048
     Dates: start: 20051212, end: 20060102

REACTIONS (6)
  - APNOEA [None]
  - CARDIAC FAILURE [None]
  - CONVULSION [None]
  - FEMORAL NECK FRACTURE [None]
  - HYPOGLYCAEMIC COMA [None]
  - ORAL INTAKE REDUCED [None]
